FAERS Safety Report 5492859-4 (Version None)
Quarter: 2007Q4

REPORT INFORMATION
  Report Type: 
  Country: None (occurrence: None)
  Receive Date: 20071023
  Receipt Date: 20070413
  Transmission Date: 20080405
  Serious: No
  Sender: FDA-Public Use
  Company Number: US-BRISTOL-MYERS SQUIBB COMPANY-13747894

PATIENT

DRUGS (1)
  1. BUSPAR [Suspect]

REACTIONS (2)
  - DYSGEUSIA [None]
  - PAROSMIA [None]
